FAERS Safety Report 5615067-2 (Version None)
Quarter: 2008Q1

REPORT INFORMATION
  Report Type: 
  Country: None (occurrence: None)
  Receive Date: 20080205
  Receipt Date: 20080205
  Transmission Date: 20080703
  Serious: Yes (Other)
  Sender: FDA-Public Use
  Company Number: None

PATIENT
  Age: 57 Year
  Sex: Male
  Weight: 63.5036 kg

DRUGS (3)
  1. PROVIGIL [Suspect]
     Indication: AMNESIA
     Dosage: 1 TABLET EVERY MORNING PO
     Route: 048
     Dates: start: 20080201, end: 20080201
  2. PROVIGIL [Suspect]
     Indication: HEAD INJURY
     Dosage: 1 TABLET EVERY MORNING PO
     Route: 048
     Dates: start: 20080201, end: 20080201
  3. PROVIGIL [Suspect]
     Indication: SOMNOLENCE
     Dosage: 1 TABLET EVERY MORNING PO
     Route: 048
     Dates: start: 20080201, end: 20080201

REACTIONS (4)
  - BLOOD PRESSURE INCREASED [None]
  - HEART RATE INCREASED [None]
  - INCORRECT DOSE ADMINISTERED [None]
  - LIVER TRANSPLANT [None]
